FAERS Safety Report 13552407 (Version 1)
Quarter: 2017Q2

REPORT INFORMATION
  Report Type: Spontaneous
  Country: CN (occurrence: CN)
  Receive Date: 20170517
  Receipt Date: 20170517
  Transmission Date: 20170830
  Serious: Yes (Other)
  Sender: FDA-Public Use
  Company Number: CN-BAXTER-2017BAX020373

PATIENT
  Age: 69 Year
  Sex: Female

DRUGS (2)
  1. SULPERAZONE [Suspect]
     Active Substance: CEFOPERAZONE SODIUM\SULBACTAM SODIUM
     Indication: INFECTION
     Route: 041
     Dates: start: 20170203, end: 20170203
  2. 0.9% SODIUM CHLORIDE INJECTION [Suspect]
     Active Substance: SODIUM CHLORIDE
     Indication: MEDICATION DILUTION
     Route: 041
     Dates: start: 20170203, end: 20170203

REACTIONS (7)
  - Cold sweat [Recovering/Resolving]
  - Rash erythematous [Recovering/Resolving]
  - Cyanosis [Recovering/Resolving]
  - Altered state of consciousness [Recovering/Resolving]
  - Pallor [Recovering/Resolving]
  - Chills [Recovering/Resolving]
  - Dyspnoea [Recovering/Resolving]

NARRATIVE: CASE EVENT DATE: 20170203
